FAERS Safety Report 5554733-4 (Version None)
Quarter: 2007Q4

REPORT INFORMATION
  Report Type: 
  Country: None (occurrence: None)
  Receive Date: 20071211
  Receipt Date: 20071211
  Transmission Date: 20080405
  Serious: No
  Sender: FDA-Public Use
  Company Number: None

PATIENT

DRUGS (2)
  1. BETAMETHASONE [Suspect]
     Dates: start: 20070901
  2. BETAMETHASONE [Suspect]
     Dates: start: 20071001

REACTIONS (3)
  - MOUTH ULCERATION [None]
  - PAIN [None]
  - PHARYNGEAL ULCERATION [None]
